FAERS Safety Report 5822250-X (Version None)
Quarter: 2008Q3

REPORT INFORMATION
  Report Type: 
  Country: None (occurrence: None)
  Receive Date: 20080723
  Receipt Date: 20080723
  Transmission Date: 20090109
  Serious: Yes (Hospitalization)
  Sender: FDA-Public Use
  Company Number: None

PATIENT
  Age: 51 Year
  Sex: Male
  Weight: 97.5 kg

DRUGS (1)
  1. QUINIDINE GLUCONATE [Suspect]
     Indication: ARRHYTHMIA
     Dosage: 324 MG TWICE DAILY PO, ABOUT OVER A MONTH
     Route: 048

REACTIONS (2)
  - HEPATITIS [None]
  - THROMBOCYTOPENIA [None]
